FAERS Safety Report 6538173-7 (Version None)
Quarter: 2010Q1

REPORT INFORMATION
  Report Type: 
  Country: None (occurrence: None)
  Receive Date: 20100114
  Receipt Date: 20100111
  Transmission Date: 20100710
  Serious: Yes (Death, Hospitalization, Other)
  Sender: FDA-Public Use
  Company Number: PHEH2008US01388

PATIENT
  Sex: Female
  Weight: 62.585 kg

DRUGS (7)
  1. AREDIA [Suspect]
     Dosage: UNK
     Dates: end: 20060301
  2. ZOMETA [Suspect]
     Dosage: UNK
     Dates: end: 20060301
  3. FASLODEX [Concomitant]
     Dosage: UNK
     Dates: start: 20021001, end: 20070801
  4. ARIMIDEX [Concomitant]
     Dosage: UNK
     Dates: start: 20070801
  5. FLAGYL [Concomitant]
     Dosage: 500 UNK, UNK
     Route: 048
  6. PENICILLIN ^GRUNENTHAL^ [Concomitant]
     Dosage: 500 MG, UNK
  7. RADIATION [Concomitant]

REACTIONS (18)
  - ANAEMIA [None]
  - ANXIETY [None]
  - DEATH [None]
  - DEFORMITY [None]
  - DISABILITY [None]
  - DISEASE PROGRESSION [None]
  - GINGIVAL ABSCESS [None]
  - IMPAIRED HEALING [None]
  - INFECTION [None]
  - INJURY [None]
  - MASS [None]
  - METASTASES TO LIVER [None]
  - OSTEOMYELITIS [None]
  - OSTEONECROSIS [None]
  - OSTEOPENIA [None]
  - PAIN [None]
  - RENAL FAILURE CHRONIC [None]
  - SCOLIOSIS [None]
